FAERS Safety Report 6627728-7 (Version None)
Quarter: 2010Q1

REPORT INFORMATION
  Report Type: 
  Country: None (occurrence: None)
  Receive Date: 20100311
  Receipt Date: 20100301
  Transmission Date: 20100710
  Serious: Yes (Hospitalization, Other)
  Sender: FDA-Public Use
  Company Number: PHHY2010BR11345

PATIENT
  Age: 78 Year
  Sex: Female
  Weight: 60 kg

DRUGS (1)
  1. FORASEQ [Suspect]
     Indication: BRONCHITIS
     Dosage: 1 DF, BID

REACTIONS (8)
  - BURSITIS [None]
  - FALL [None]
  - HUMERUS FRACTURE [None]
  - INSOMNIA [None]
  - LIMB OPERATION [None]
  - PAIN [None]
  - TREATMENT NONCOMPLIANCE [None]
  - WHEEZING [None]
